FAERS Safety Report 6993093-9 (Version None)
Quarter: 2010Q3

REPORT INFORMATION
  Report Type: 
  Country: None (occurrence: None)
  Receive Date: 20100917
  Receipt Date: 20100203
  Transmission Date: 20110219
  Serious: Yes (Hospitalization)
  Sender: FDA-Public Use
  Company Number: US-ASTRAZENECA-2010SE02365

PATIENT
  Age: 18548 Day
  Sex: Male

DRUGS (4)
  1. SEROQUEL [Suspect]
     Indication: BIPOLAR DISORDER
     Route: 048
     Dates: start: 20060501, end: 20060701
  2. LORAZEPAM [Concomitant]
     Indication: BIPOLAR DISORDER
     Dates: start: 20010101
  3. TEMAZEPAM [Concomitant]
     Indication: BIPOLAR DISORDER
     Dosage: 25-30 MG DAILY
     Dates: start: 20040101, end: 20060101
  4. TRILAFON [Concomitant]

REACTIONS (3)
  - DIABETIC KETOACIDOSIS [None]
  - PANCREATITIS [None]
  - TYPE 2 DIABETES MELLITUS [None]
